FAERS Safety Report 4882008-5 (Version None)
Quarter: 2006Q1

REPORT INFORMATION
  Report Type: 
  Country: None (occurrence: None)
  Receive Date: 20060112
  Receipt Date: 20060103
  Transmission Date: 20060701
  Serious: Yes (Life-Threatening, Other)
  Sender: FDA-Public Use
  Company Number: FRWYE273603JAN06

PATIENT
  Age: 40 Year
  Sex: Male

DRUGS (6)
  1. LORAZEPAM [Suspect]
     Indication: PSYCHOTIC DISORDER
     Dosage: ORAL
     Route: 048
  2. CLOPIXOL (ZUCLOPENTHIXOL DECANOATE, , 0) [Suspect]
     Indication: PSYCHOTIC DISORDER
     Dosage: ORAL
     Route: 048
  3. CLOPIXOL - SLOW RELEASE (ZUCLOPENTHIXOL DECANOATE, , 0) [Suspect]
     Indication: PSYCHOTIC DISORDER
     Dosage: IM
     Route: 030
  4. PARKINANE (TRIHEXYPHENIDYL, , 0) [Suspect]
     Indication: PSYCHOTIC DISORDER
     Dosage: ORAL
     Route: 048
  5. ZOLPIDEM TARTRATE [Suspect]
     Indication: PSYCHOTIC DISORDER
     Dosage: ORAL
     Route: 048
  6. TERCIAN (CYAMEMAZINE, , 0) [Suspect]
     Indication: PSYCHOTIC DISORDER
     Dosage: ORAL
     Route: 048

REACTIONS (6)
  - ACUTE RESPIRATORY DISTRESS SYNDROME [None]
  - DISTURBANCE IN ATTENTION [None]
  - LARYNGOSPASM [None]
  - MIOSIS [None]
  - MUSCLE CONTRACTURE [None]
  - TONGUE DISORDER [None]
